FAERS Safety Report 7275022-6 (Version None)
Quarter: 2011Q1

REPORT INFORMATION
  Report Type: 
  Country: None (occurrence: None)
  Receive Date: 20110204
  Receipt Date: 20110128
  Transmission Date: 20110831
  Serious: Yes (Other)
  Sender: FDA-Public Use
  Company Number: US-ROCHE-740147

PATIENT
  Sex: Male

DRUGS (2)
  1. PEGASYS [Suspect]
     Indication: HEPATITIS C
     Dosage: FORM: PRE-FILLED SYRINGE
     Route: 058
     Dates: start: 20101106
  2. RIBAVIRIN [Suspect]
     Indication: HEPATITIS C
     Dosage: FORM: PILL, FREQ: ONE PILL IN AM AND ONE PILL IN PM, IN DIVIDED DOSES
     Route: 065
     Dates: start: 20101106

REACTIONS (9)
  - SKIN LESION [None]
  - HEADACHE [None]
  - DECREASED APPETITE [None]
  - NAUSEA [None]
  - FATIGUE [None]
  - ABDOMINAL PAIN UPPER [None]
  - WHITE BLOOD CELL COUNT ABNORMAL [None]
  - MALIGNANT MELANOMA [None]
  - FULL BLOOD COUNT DECREASED [None]
